FAERS Safety Report 21736167 (Version 1)
Quarter: 2022Q4

REPORT INFORMATION
  Report Type: Report from Study
  Country: GR (occurrence: GR)
  Receive Date: 20221215
  Receipt Date: 20221215
  Transmission Date: 20230113
  Serious: Yes (Hospitalization)
  Sender: FDA-Public Use
  Company Number: GR-ABBVIE-4237402

PATIENT
  Age: 73 Year
  Sex: Male
  Weight: 90 kg

DRUGS (7)
  1. CARBIDOPA\LEVODOPA [Suspect]
     Active Substance: CARBIDOPA\LEVODOPA
     Indication: Parkinson^s disease
     Dosage: MORNING DOSE: 10 ML; CONTINUOUS RATE: 3.9 ML/H; EXTRA DOSE: 1 ML
     Route: 050
     Dates: start: 20221205
  2. CARBIDOPA\LEVODOPA [Suspect]
     Active Substance: CARBIDOPA\LEVODOPA
  3. DEMENTIS [Concomitant]
     Indication: Dementia
     Route: 048
  4. MYSOLINE [Concomitant]
     Active Substance: PRIMIDONE
     Indication: Dyskinesia
     Dosage: UNIT DOSE: 62.5MG; 250 MG
     Route: 048
  5. REFERAN [Concomitant]
     Indication: Memory impairment
     Route: 048
  6. DULCOLAX NOS [Concomitant]
     Active Substance: BISACODYL OR DOCUSATE SODIUM
     Indication: Constipation
     Route: 048
  7. ESCITALOPRAM [Concomitant]
     Active Substance: ESCITALOPRAM OXALATE
     Indication: Depression
     Route: 048

REACTIONS (5)
  - Abdominal pain [Recovered/Resolved]
  - Stoma site irritation [Not Recovered/Not Resolved]
  - Unevaluable event [Unknown]
  - Arthralgia [Recovered/Resolved]
  - Constipation [Not Recovered/Not Resolved]

NARRATIVE: CASE EVENT DATE: 20221201
